FAERS Safety Report 23326521 (Version 3)
Quarter: 2024Q4

REPORT INFORMATION
  Report Type: Spontaneous
  Country: US (occurrence: US)
  Receive Date: 20231221
  Receipt Date: 20241112
  Transmission Date: 20250115
  Serious: Yes (Hospitalization)
  Sender: CSL BEHRING
  Company Number: US-BEH-2023166584

PATIENT
  Age: 52 Year
  Sex: Female

DRUGS (11)
  1. HIZENTRA [Suspect]
     Active Substance: HUMAN IMMUNOGLOBULIN G
     Indication: Hypogammaglobulinaemia
     Dosage: 14 GRAM, QOW
     Route: 058
     Dates: start: 20220927
  2. HIZENTRA [Suspect]
     Active Substance: HUMAN IMMUNOGLOBULIN G
     Dosage: 16 GRAM, QOW
     Route: 058
     Dates: start: 2024
  3. ATROPINE [Concomitant]
     Active Substance: ATROPINE
  4. DICYCLOMINE [Concomitant]
     Active Substance: DICYCLOMINE HYDROCHLORIDE
  5. FLUCONAZOLE [Concomitant]
     Active Substance: FLUCONAZOLE
  6. GAMMAGARD [Concomitant]
     Active Substance: HUMAN IMMUNOGLOBULIN G
  7. LIDO/PRILOCAINE [Concomitant]
  8. OZEMPIC [Concomitant]
     Active Substance: SEMAGLUTIDE
  9. SOLU-MEDROL [Concomitant]
     Active Substance: METHYLPREDNISOLONE SODIUM SUCCINATE
  10. LEVOTHYROXINE [Concomitant]
     Active Substance: LEVOTHYROXINE
     Dosage: 137 MCG
     Route: 065
  11. OXYBUTYNIN [Concomitant]
     Active Substance: OXYBUTYNIN
     Dosage: 5 MG
     Route: 065

REACTIONS (4)
  - Sepsis [Unknown]
  - Nephrolithiasis [Unknown]
  - Malaise [Not Recovered/Not Resolved]
  - Treatment delayed [Not Recovered/Not Resolved]

NARRATIVE: CASE EVENT DATE: 20240401
